FAERS Safety Report 8332338-X (Version None)
Quarter: 2012Q2

REPORT INFORMATION
  Report Type: 
  Country: None (occurrence: None)
  Receive Date: 20120430
  Receipt Date: 20120413
  Transmission Date: 20120825
  Serious: Yes (Hospitalization)
  Sender: FDA-Public Use
  Company Number: TCI2012A01433

PATIENT
  Age: 63 Year
  Sex: Male

DRUGS (3)
  1. CRESTOR [Suspect]
     Indication: DYSLIPIDAEMIA
     Dosage: 2.5 MG (2.5 MG, 1 IN 1 D)  PER ORAL
     Route: 048
     Dates: start: 20120111, end: 20120321
  2. LIOVEL COMBINATION TABLETS HD [Suspect]
     Indication: DIABETES MELLITUS
     Dosage: 1 TAB. (1 TAB.,1 IN 1 D) PER ORAL
     Route: 048
     Dates: start: 20111214, end: 20120315
  3. NESINA [Suspect]
     Indication: DIABETES MELLITUS
     Dosage: 25 MG (25 MG, 1 IN 1 D) PER ORAL
     Route: 048
     Dates: start: 20111201, end: 20111213

REACTIONS (2)
  - WHITE BLOOD CELL COUNT DECREASED [None]
  - PLATELET COUNT DECREASED [None]
